FAERS Safety Report 7878013-7 (Version None)
Quarter: 2011Q4

REPORT INFORMATION
  Report Type: 
  Country: None (occurrence: None)
  Receive Date: 20111031
  Receipt Date: 20111024
  Transmission Date: 20120403
  Serious: Yes (Death)
  Sender: FDA-Public Use
  Company Number: US-CELGENEUS-163-21880-11102940

PATIENT
  Sex: Male

DRUGS (12)
  1. HUMALOG [Concomitant]
     Dosage: 100/ML
     Route: 065
     Dates: start: 20110629
  2. TORSEMIDE [Concomitant]
     Dosage: 5 MILLIGRAM
     Route: 048
     Dates: start: 20110629
  3. ASPIRIN [Concomitant]
     Dosage: 325 MILLIGRAM
     Route: 048
     Dates: start: 20110629
  4. DECADRON [Concomitant]
     Dosage: .5 MILLIGRAM
     Route: 048
     Dates: start: 20110629
  5. LANTUS [Concomitant]
     Dosage: 100/ML
     Route: 065
     Dates: start: 20110629
  6. AMLODIPINE [Concomitant]
     Dosage: 10 MILLIGRAM
     Route: 048
     Dates: start: 20110629
  7. REVLIMID [Suspect]
     Dosage: 10 MILLIGRAM
     Route: 048
     Dates: start: 20110701, end: 20111010
  8. HYDROXYCHLOROQUINE SULFATE [Concomitant]
     Route: 048
     Dates: start: 20110629
  9. POTASSIUM [Concomitant]
     Dosage: 75 MILLIGRAM
     Route: 048
     Dates: start: 20110629
  10. SIMVASTATIN [Concomitant]
     Dosage: 20 MILLIGRAM
     Route: 048
     Dates: start: 20110629
  11. REVLIMID [Suspect]
     Indication: MULTIPLE MYELOMA
     Dosage: 5 MILLIGRAM
     Route: 048
     Dates: start: 20110630
  12. INSULIN [Concomitant]
     Dosage: 0.3/28G
     Route: 065
     Dates: start: 20110629

REACTIONS (1)
  - MYOCARDIAL INFARCTION [None]
